FAERS Safety Report 19496164 (Version 1)
Quarter: 2021Q3

REPORT INFORMATION
  Report Type: Spontaneous
  Country: US (occurrence: US)
  Receive Date: 20210702
  Receipt Date: 20210702
  Transmission Date: 20211014
  Serious: Yes (Hospitalization)
  Sender: FDA-Public Use
  Company Number: None

PATIENT
  Age: 92 Year
  Sex: Male
  Weight: 92.25 kg

DRUGS (14)
  1. BUMEX [Suspect]
     Active Substance: BUMETANIDE
     Indication: OEDEMA PERIPHERAL
     Dosage: ?          QUANTITY:2 TABLET(S);?
     Route: 048
     Dates: start: 20210606, end: 20210629
  2. ATORVASTATIN [Concomitant]
     Active Substance: ATORVASTATIN
  3. POTASSIUM [Concomitant]
     Active Substance: POTASSIUM
  4. ALLOPURINOL. [Concomitant]
     Active Substance: ALLOPURINOL
  5. HYDRALAZINE [Concomitant]
     Active Substance: HYDRALAZINE HYDROCHLORIDE
  6. TAMSULOSIN [Concomitant]
     Active Substance: TAMSULOSIN
  7. BASAGLAR [Concomitant]
     Active Substance: INSULIN GLARGINE
  8. LISINOPRIL. [Concomitant]
     Active Substance: LISINOPRIL
  9. REPAGLINIDE. [Concomitant]
     Active Substance: REPAGLINIDE
  10. METOPROLOL. [Concomitant]
     Active Substance: METOPROLOL
  11. MYRBETRIQ [Concomitant]
     Active Substance: MIRABEGRON
  12. ASPIRIN. [Concomitant]
     Active Substance: ASPIRIN
  13. CALCITROL [Concomitant]
  14. TYLENOL [Concomitant]
     Active Substance: ACETAMINOPHEN

REACTIONS (26)
  - Nausea [None]
  - Fatigue [None]
  - Dehydration [None]
  - Oedema [None]
  - Syncope [None]
  - Tinnitus [None]
  - Hypoacusis [None]
  - Renal disorder [None]
  - Paraesthesia [None]
  - Dizziness [None]
  - Thirst [None]
  - Vomiting [None]
  - Haemorrhage [None]
  - Muscle spasms [None]
  - Asthenia [None]
  - Hypersomnia [None]
  - Confusional state [None]
  - Deafness [None]
  - Lethargy [None]
  - Myalgia [None]
  - Heart rate irregular [None]
  - Hypotension [None]
  - Hypoaesthesia [None]
  - Somnolence [None]
  - Dry mouth [None]
  - Increased tendency to bruise [None]

NARRATIVE: CASE EVENT DATE: 20210629
